FAERS Safety Report 15662853 (Version 2)
Quarter: 2019Q2

REPORT INFORMATION
  Report Type: Spontaneous
  Country: US (occurrence: US)
  Receive Date: 20181127
  Receipt Date: 20190401
  Transmission Date: 20190711
  Serious: Yes (Other)
  Sender: FDA-Public Use
  Company Number: US-SA-2018SA183262

PATIENT
  Age: 52 Year
  Sex: Female
  Weight: 149.68 kg

DRUGS (5)
  1. TAXOTERE [Suspect]
     Active Substance: DOCETAXEL
     Indication: BREAST CANCER
     Dosage: 180 MG, QW
     Route: 042
     Dates: start: 20150413, end: 20150413
  2. TAXOTERE [Suspect]
     Active Substance: DOCETAXEL
     Dosage: 180 MG
     Route: 042
     Dates: start: 20150512, end: 20150512
  3. PERJETA [Concomitant]
     Active Substance: PERTUZUMAB
  4. CARBOPLATIN. [Concomitant]
     Active Substance: CARBOPLATIN
  5. HERCEPTIN [Concomitant]
     Active Substance: TRASTUZUMAB

REACTIONS (2)
  - Alopecia [Recovering/Resolving]
  - Psychological trauma [Unknown]
